FAERS Safety Report 25133316 (Version 1)
Quarter: 2025Q1

REPORT INFORMATION
  Report Type: Spontaneous
  Country: US (occurrence: US)
  Receive Date: 20250328
  Receipt Date: 20250328
  Transmission Date: 20250408
  Serious: No
  Sender: AMNEAL
  Company Number: US-AMNEAL PHARMACEUTICALS-2025-AMRX-00607

PATIENT
  Age: 16 Year
  Sex: Female

DRUGS (1)
  1. MEDROXYPROGESTERONE ACETATE [Suspect]
     Active Substance: MEDROXYPROGESTERONE ACETATE
     Indication: Product used for unknown indication
     Route: 065
     Dates: start: 20250210, end: 20250210

REACTIONS (3)
  - Incorrect dose administered [Unknown]
  - Liquid product physical issue [Unknown]
  - No adverse event [Unknown]

NARRATIVE: CASE EVENT DATE: 20250210
